FAERS Safety Report 4791782-8 (Version None)
Quarter: 2005Q4

REPORT INFORMATION
  Report Type: 
  Country: None (occurrence: None)
  Receive Date: 20051005
  Receipt Date: 20050920
  Transmission Date: 20060501
  Serious: Yes (Death, Hospitalization)
  Sender: FDA-Public Use
  Company Number: US_0504116143

PATIENT
  Age: 65 Year
  Sex: Female

DRUGS (2)
  1. ZYPREXA [Suspect]
     Indication: ANXIETY DISORDER
     Dosage: 5  MG
     Dates: start: 20040101, end: 20040101
  2. TIANEPTINE [Concomitant]

REACTIONS (4)
  - AGGRESSION [None]
  - DELIRIUM [None]
  - EXTRAPYRAMIDAL DISORDER [None]
  - URINARY RETENTION [None]
